FAERS Safety Report 20289416 (Version 2)
Quarter: 2022Q1

REPORT INFORMATION
  Report Type: Other
  Country: CN (occurrence: CN)
  Receive Date: 20220104
  Receipt Date: 20220330
  Transmission Date: 20220423
  Serious: Yes (Other)
  Sender: FDA-Public Use
  Company Number: CN-002147023-NVSC2021CN291548

PATIENT

DRUGS (1)
  1. RANIBIZUMAB [Suspect]
     Active Substance: RANIBIZUMAB
     Indication: Neovascular age-related macular degeneration
     Dosage: 0.5 MG, QMO, DURING THE CORE TREATMENT PERIOD (0, 1 AND 2 MONTHS, A TOTAL OF THREE TIMES)
     Route: 050

REACTIONS (1)
  - Ocular hypertension [Recovered/Resolved]
